FAERS Safety Report 5701304-2 (Version None)
Quarter: 2008Q2

REPORT INFORMATION
  Report Type: 
  Country: None (occurrence: None)
  Receive Date: 20080410
  Receipt Date: 20080331
  Transmission Date: 20081010
  Serious: Yes (Hospitalization)
  Sender: FDA-Public Use
  Company Number: ES-WYE-H03528308

PATIENT
  Age: 95 Year
  Sex: Female

DRUGS (2)
  1. AMIODARONE HCL [Suspect]
     Indication: ATRIAL FIBRILLATION
     Dosage: LOADING DOSE ^400 MG/5 DAYS^
     Route: 065
  2. AMIODARONE HCL [Suspect]
     Dosage: 1000 MG WEEKLY
     Route: 065

REACTIONS (2)
  - LONG QT SYNDROME [None]
  - VENTRICULAR TACHYCARDIA [None]
